FAERS Safety Report 12129382 (Version 1)
Quarter: 2016Q1

REPORT INFORMATION
  Report Type: Other
  Country: US (occurrence: US)
  Receive Date: 20160229
  Receipt Date: 20160229
  Transmission Date: 20160526
  Serious: No
  Sender: FDA-Public Use
  Company Number: US-ACORDA-ACO_20390_2010

PATIENT
  Age: 45 Year
  Sex: Male
  Weight: 79.37 kg

DRUGS (2)
  1. AMPYRA [Suspect]
     Active Substance: DALFAMPRIDINE
     Indication: GAIT DISTURBANCE
     Dosage: 10 MG, Q 12 HRS
     Route: 048
     Dates: start: 20101029
  2. CLONAZEPAM. [Concomitant]
     Active Substance: CLONAZEPAM
     Indication: PRODUCT USED FOR UNKNOWN INDICATION
     Dosage: UNK

REACTIONS (6)
  - Gait disturbance [Unknown]
  - Ingrown hair [Unknown]
  - Pruritus [Unknown]
  - Thinking abnormal [Unknown]
  - Acne [Unknown]
  - Formication [Unknown]

NARRATIVE: CASE EVENT DATE: 20101010
